FAERS Safety Report 13219015 (Version 2)
Quarter: 2018Q1

REPORT INFORMATION
  Report Type: Other
  Country: US (occurrence: US)
  Receive Date: 20170210
  Receipt Date: 20180130
  Transmission Date: 20180508
  Serious: No
  Sender: FDA-Public Use
  Company Number: US-ACORDA-ACO_123063_2016

PATIENT
  Age: 31 Year
  Sex: Female

DRUGS (11)
  1. TIZANIDINE. [Suspect]
     Active Substance: TIZANIDINE
     Dosage: UNK
     Route: 065
     Dates: start: 200909, end: 201302
  2. TIZANIDINE. [Suspect]
     Active Substance: TIZANIDINE
     Dosage: 4 MG EVERY MORNING, 8 MG EVERY AFTERNOON, 12 MG AT BEDTIME
     Route: 048
     Dates: start: 201401
  3. EXCEDRIN MIGRAINE [Concomitant]
     Active Substance: ACETAMINOPHEN\ASPIRIN\CAFFEINE
     Indication: PRODUCT USED FOR UNKNOWN INDICATION
     Dosage: UNK
     Route: 065
  4. TYSABRI [Concomitant]
     Active Substance: NATALIZUMAB
     Indication: PRODUCT USED FOR UNKNOWN INDICATION
     Dosage: UNK
     Route: 065
  5. PROVIGIL [Concomitant]
     Active Substance: MODAFINIL
     Indication: PRODUCT USED FOR UNKNOWN INDICATION
     Dosage: UNK
     Route: 065
  6. TIZANIDINE. [Suspect]
     Active Substance: TIZANIDINE
     Indication: MUSCLE SPASMS
     Dosage: UNK
     Route: 065
     Dates: start: 200303, end: 200708
  7. MULTIVITAMIN [Concomitant]
     Active Substance: VITAMINS
     Indication: PRODUCT USED FOR UNKNOWN INDICATION
     Dosage: UNK
     Route: 065
  8. PRIMIDONE. [Concomitant]
     Active Substance: PRIMIDONE
     Indication: PRODUCT USED FOR UNKNOWN INDICATION
     Dosage: UNK
     Route: 065
  9. AMPYRA [Suspect]
     Active Substance: DALFAMPRIDINE
     Indication: MULTIPLE SCLEROSIS
     Dosage: 10 MG, Q 12 HRS
     Route: 048
     Dates: start: 201602
  10. HAIR/SKIN/NAILS [Concomitant]
     Indication: PRODUCT USED FOR UNKNOWN INDICATION
     Dosage: UNK
     Route: 065
  11. GILENYA [Suspect]
     Active Substance: FINGOLIMOD HYDROCHLORIDE
     Indication: PRODUCT USED FOR UNKNOWN INDICATION
     Dosage: UNK
     Route: 065

REACTIONS (25)
  - Dysarthria [Recovered/Resolved]
  - Mobility decreased [Not Recovered/Not Resolved]
  - Alopecia [Unknown]
  - Urinary tract infection [Unknown]
  - Fatigue [Recovered/Resolved]
  - Drug dose omission [Recovered/Resolved]
  - Pregnancy [Recovered/Resolved]
  - Tremor [Not Recovered/Not Resolved]
  - Blister [Unknown]
  - Immune system disorder [Recovered/Resolved]
  - Influenza [Recovered/Resolved]
  - Memory impairment [Recovered/Resolved]
  - Dizziness [Unknown]
  - Pregnancy [Recovered/Resolved]
  - Fall [Not Recovered/Not Resolved]
  - Balance disorder [Not Recovered/Not Resolved]
  - Frustration tolerance decreased [Not Recovered/Not Resolved]
  - Multiple sclerosis relapse [Recovered/Resolved]
  - Sinusitis [Recovered/Resolved]
  - Walking aid user [Unknown]
  - Decreased interest [Not Recovered/Not Resolved]
  - Loss of personal independence in daily activities [Not Recovered/Not Resolved]
  - Depression [Not Recovered/Not Resolved]
  - Dehydration [Unknown]
  - Multiple sclerosis [Not Recovered/Not Resolved]

NARRATIVE: CASE EVENT DATE: 200708
